FAERS Safety Report 6657747-6 (Version None)
Quarter: 2010Q1

REPORT INFORMATION
  Report Type: 
  Country: None (occurrence: None)
  Receive Date: 20100330
  Receipt Date: 20090807
  Transmission Date: 20100710
  Serious: No
  Sender: FDA-Public Use
  Company Number: US-TYCO HEALTHCARE/MALLINCKRODT-T200901491

PATIENT
  Age: 29 Year
  Sex: Female

DRUGS (3)
  1. METHADOSE [Suspect]
  2. OXYCODONE [Suspect]
  3. NARCOTICS [Suspect]

REACTIONS (1)
  - FEELING ABNORMAL [None]
